FAERS Safety Report 10649050 (Version 1)
Quarter: 2014Q4

REPORT INFORMATION
  Report Type: Spontaneous
  Country: US (occurrence: None)
  Receive Date: 20141205
  Receipt Date: 20141205
  Transmission Date: 20150529
  Serious: No
  Sender: FDA-Public Use
  Company Number: USA-2014101528

PATIENT
  Age: 64 Year
  Sex: Female

DRUGS (1)
  1. POMALYST [Suspect]
     Active Substance: POMALIDOMIDE
     Indication: PLASMA CELL MYELOMA
     Dosage: 14 IN 14 D
     Route: 048
     Dates: start: 201408

REACTIONS (6)
  - Erythema [None]
  - Abdominal distension [None]
  - Chest discomfort [None]
  - Peripheral swelling [None]
  - Pain in extremity [None]
  - Rash pruritic [None]

NARRATIVE: CASE EVENT DATE: 2014
